FAERS Safety Report 4553316-2 (Version None)
Quarter: 2005Q1

REPORT INFORMATION
  Report Type: 
  Country: None (occurrence: None)
  Receive Date: 20050114
  Receipt Date: 20041231
  Transmission Date: 20050727
  Serious: Yes (Death, Hospitalization)
  Sender: FDA-Public Use
  Company Number: FR-JNJFOC-20041207639

PATIENT
  Age: 63 Year
  Sex: Female
  Weight: 58 kg

DRUGS (4)
  1. REMICADE [Suspect]
     Indication: RHEUMATOID ARTHRITIS
     Route: 042
  2. CORTANCYL [Concomitant]
     Indication: RHEUMATOID ARTHRITIS
     Route: 049
  3. ARAVA [Concomitant]
     Indication: RHEUMATOID ARTHRITIS
     Route: 049
  4. KINERET [Concomitant]
     Indication: RHEUMATOID ARTHRITIS
     Route: 058

REACTIONS (11)
  - ACUTE RESPIRATORY FAILURE [None]
  - CANDIDIASIS [None]
  - CARDIAC FAILURE [None]
  - CREPITATIONS [None]
  - LEUKOCYTOSIS [None]
  - MULTI-ORGAN FAILURE [None]
  - ORTHOPNOEA [None]
  - RALES [None]
  - SEPTIC SHOCK [None]
  - STAPHYLOCOCCAL SEPSIS [None]
  - TACHYCARDIA [None]
